FAERS Safety Report 21049398 (Version 4)
Quarter: 2022Q4

REPORT INFORMATION
  Report Type: Report from Study
  Country: US (occurrence: US)
  Receive Date: 20220706
  Receipt Date: 20221012
  Transmission Date: 20230113
  Serious: Yes (Other)
  Sender: FDA-Public Use
  Company Number: US-ALLERGAN-2221591US

PATIENT

DRUGS (1)
  1. UBROGEPANT [Suspect]
     Active Substance: UBROGEPANT
     Indication: Migraine
     Dosage: UNK

REACTIONS (8)
  - Transient ischaemic attack [Unknown]
  - Road traffic accident [Unknown]
  - Transient aphasia [Unknown]
  - Speech disorder [Unknown]
  - Confusional state [Unknown]
  - Vomiting [Unknown]
  - Migraine [Unknown]
  - Headache [Not Recovered/Not Resolved]
